FAERS Safety Report 9328133 (Version 1)
Quarter: 2013Q2

REPORT INFORMATION
  Report Type: Spontaneous
  Country: US (occurrence: US)
  Receive Date: 20130604
  Receipt Date: 20130604
  Transmission Date: 20140414
  Serious: No
  Sender: FDA-Public Use
  Company Number: US-SANOFI-AVENTIS-2012SA035861

PATIENT
  Age: 65 Year
  Sex: Female
  Weight: 72 kg

DRUGS (6)
  1. LANTUS [Suspect]
     Indication: TYPE 2 DIABETES MELLITUS
     Dosage: THERAPY START DATE: 28 MONTHS AGO. DOSE:51 UNIT(S)
     Route: 058
     Dates: start: 2010
  2. SOLOSTAR [Suspect]
     Indication: TYPE 2 DIABETES MELLITUS
     Dates: start: 2010
  3. LISINOPRIL [Concomitant]
     Indication: RENAL DISORDER
  4. LEVOTHYROXINE [Concomitant]
     Indication: THYROID DISORDER
  5. CITALOPRAM [Concomitant]
     Indication: NERVOUS SYSTEM DISORDER
  6. SIMVASTATIN [Concomitant]
     Indication: CARDIAC DISORDER

REACTIONS (4)
  - Malaise [Recovered/Resolved]
  - Feeling abnormal [Recovered/Resolved]
  - Blood glucose increased [Recovered/Resolved]
  - Drug ineffective [Unknown]
